FAERS Safety Report 9752730 (Version 1)
Quarter: 2013Q4

REPORT INFORMATION
  Report Type: Spontaneous
  Country: US (occurrence: None)
  Receive Date: 20131212
  Receipt Date: 20131212
  Transmission Date: 20140711
  Serious: No
  Sender: FDA-Public Use
  Company Number: None

PATIENT
  Age: 58 Year
  Sex: 0
  Weight: 87.7 kg

DRUGS (1)
  1. CISPLATIN [Suspect]

REACTIONS (4)
  - Swelling face [None]
  - Local swelling [None]
  - Body temperature increased [None]
  - Abscess [None]
